FAERS Safety Report 11921502 (Version 1)
Quarter: 2016Q1

REPORT INFORMATION
  Report Type: Report from Study
  Country: FR (occurrence: FR)
  Receive Date: 20160115
  Receipt Date: 20160115
  Transmission Date: 20160526
  Serious: Yes (Hospitalization)
  Sender: FDA-Public Use
  Company Number: PHHY2015FR172988

PATIENT
  Age: 76 Year
  Sex: Female

DRUGS (9)
  1. LBH589 [Suspect]
     Active Substance: PANOBINOSTAT
     Indication: PLASMA CELL MYELOMA
     Dosage: 20 MG, TWICE WEEKLY 2 WEEKS ON 3
     Route: 065
     Dates: start: 20151005, end: 20151007
  2. LBH589 [Suspect]
     Active Substance: PANOBINOSTAT
     Dosage: 20 MG, TWICE WEEKLY 2 WEEKS ON 3
     Route: 065
     Dates: start: 20151019, end: 20151026
  3. BORTEZOMIB [Concomitant]
     Active Substance: BORTEZOMIB
     Indication: PRODUCT USED FOR UNKNOWN INDICATION
     Dosage: 2.25 MG, QW
     Route: 058
  4. IMODIUM [Concomitant]
     Active Substance: LOPERAMIDE HYDROCHLORIDE
     Indication: PROPHYLAXIS
     Dosage: (1 TO 3 TIMES DAILY IF NEEDED) PRN
     Route: 065
  5. PREVPAC [Concomitant]
     Active Substance: AMOXICILLIN\CLARITHROMYCIN\LANSOPRAZOLE
     Indication: ATRIAL FIBRILLATION
  6. PREVPAC [Concomitant]
     Active Substance: AMOXICILLIN\CLARITHROMYCIN\LANSOPRAZOLE
     Indication: ARRHYTHMIA
     Route: 065
     Dates: start: 2008
  7. VALACICLOVIR [Concomitant]
     Active Substance: VALACYCLOVIR HYDROCHLORIDE
     Indication: PRODUCT USED FOR UNKNOWN INDICATION
     Route: 065
  8. DEXAMETHASONE. [Concomitant]
     Active Substance: DEXAMETHASONE
     Indication: PRODUCT USED FOR UNKNOWN INDICATION
     Dosage: 20 MG, QW
     Route: 065
  9. PRIMPERAN [Concomitant]
     Active Substance: METOCLOPRAMIDE HYDROCHLORIDE
     Indication: PROPHYLAXIS
     Dosage: 10 MG, PRN (1 TABLET TID IF NEEDED)
     Route: 065

REACTIONS (4)
  - Asthenia [Not Recovered/Not Resolved]
  - Thrombocytopenia [Recovered/Resolved]
  - Haemoptysis [Recovered/Resolved]
  - Cardiac failure [Recovered/Resolved]

NARRATIVE: CASE EVENT DATE: 201510
